FAERS Safety Report 23482853 (Version 1)
Quarter: 2024Q1

REPORT INFORMATION
  Report Type: Spontaneous
  Country: GR (occurrence: GR)
  Receive Date: 20240205
  Receipt Date: 20240205
  Transmission Date: 20240410
  Serious: Yes (Other)
  Sender: FDA-Public Use
  Company Number: GR-AMGEN-GRCSP2024022617

PATIENT
  Age: 64 Year
  Sex: Male

DRUGS (3)
  1. CINACALCET HYDROCHLORIDE [Suspect]
     Active Substance: CINACALCET HYDROCHLORIDE
     Indication: Hyperparathyroidism tertiary
     Dosage: UNK
     Route: 048
  2. CALCITRIOL [Concomitant]
     Active Substance: CALCITRIOL
     Indication: Hyperparathyroidism tertiary
     Route: 048
  3. Phosphates [Concomitant]
     Indication: Hyperparathyroidism tertiary
     Route: 048

REACTIONS (5)
  - Parathyroid tumour benign [Unknown]
  - Drug effective for unapproved indication [Unknown]
  - Drug intolerance [Unknown]
  - Gastrointestinal disorder [Unknown]
  - Off label use [Unknown]
